FAERS Safety Report 14995543 (Version 1)
Quarter: 2018Q2

REPORT INFORMATION
  Report Type: Report from Study
  Country: US (occurrence: US)
  Receive Date: 20180611
  Receipt Date: 20180611
  Transmission Date: 20180711
  Serious: Yes (Hospitalization, Other)
  Sender: FDA-Public Use
  Company Number: US-UCBSA-2018025284

PATIENT
  Age: 32 Year
  Sex: Female

DRUGS (1)
  1. LEVETIRACETAM. [Suspect]
     Active Substance: LEVETIRACETAM
     Indication: SEIZURE
     Dosage: UNK

REACTIONS (11)
  - Myalgia [Unknown]
  - Pneumonia [Unknown]
  - Aspiration [Unknown]
  - Back pain [Unknown]
  - Feeling abnormal [Unknown]
  - Memory impairment [Unknown]
  - Seizure [Unknown]
  - Decreased appetite [Unknown]
  - Renal impairment [Unknown]
  - Irritability [Unknown]
  - Dyspnoea [Unknown]
